FAERS Safety Report 5076538-3 (Version None)
Quarter: 2006Q3

REPORT INFORMATION
  Report Type: 
  Country: None (occurrence: None)
  Receive Date: 20060807
  Receipt Date: 20060726
  Transmission Date: 20061208
  Serious: Yes (Other)
  Sender: FDA-Public Use
  Company Number: 2006091977

PATIENT
  Age: 88 Year
  Sex: Female

DRUGS (6)
  1. AMLODIPINE [Suspect]
     Indication: HYPERTENSION
     Dosage: 10 MG (10 MG, 1 IN 1 D)
     Dates: start: 20060201
  2. PRITOR (TELMISARTAN) [Concomitant]
  3. HYDROCHLOROTHIAZIDE [Concomitant]
  4. HYPERIUM (RILMENIDINE) [Concomitant]
  5. CORDARONE [Concomitant]
  6. HOMEOPATIC PREPARATION (HOMEOPATIC PREPARATION) [Concomitant]

REACTIONS (5)
  - BLISTER [None]
  - BURNING SENSATION [None]
  - ERYTHEMA [None]
  - HYPERSENSITIVITY [None]
  - OEDEMA PERIPHERAL [None]
